FAERS Safety Report 4665105-9 (Version None)
Quarter: 2005Q2

REPORT INFORMATION
  Report Type: 
  Country: None (occurrence: None)
  Receive Date: 20050517
  Receipt Date: 20050428
  Transmission Date: 20051028
  Serious: Yes (Hospitalization)
  Sender: FDA-Public Use
  Company Number: EWC041241756

PATIENT
  Age: 62 Year
  Sex: Male

DRUGS (6)
  1. FORTEO [Suspect]
     Indication: OSTEOPOROSIS
     Dosage: 20 UG; 1 DAY
     Dates: start: 20041026
  2. ENALAPRIL MALEATE [Concomitant]
  3. DIPYRIDAMOLE [Concomitant]
  4. CALCIUM CARBONATE [Concomitant]
  5. PARACETAMOL [Concomitant]
  6. MAGNESIUM (MAGNESUM ASPARTATE) [Concomitant]

REACTIONS (6)
  - BACK PAIN [None]
  - BLOOD CHOLESTEROL INCREASED [None]
  - BLOOD PRESSURE INCREASED [None]
  - HEART RATE INCREASED [None]
  - MUSCLE SPASMS [None]
  - PAIN IN EXTREMITY [None]
